FAERS Safety Report 9314589 (Version 6)
Quarter: 2013Q3

REPORT INFORMATION
  Report Type: Report from Study
  Country: GB (occurrence: GB)
  Receive Date: 20130529
  Receipt Date: 20130917
  Transmission Date: 20140515
  Serious: Yes (Other)
  Sender: FDA-Public Use
  Company Number: GB-ASTELLAS-2013US005541

PATIENT
  Age: 73 Year
  Sex: Male
  Weight: 88 kg

DRUGS (6)
  1. BLINDED ENZALUTAMIDE [Suspect]
     Indication: PROSTATE CANCER
     Dosage: UID/QD
     Route: 048
     Dates: start: 20130125
  2. ZOLADEX                            /00732101/ [Concomitant]
     Indication: PROSTATE CANCER
     Dosage: 10.8 MG, Q3M
     Route: 058
     Dates: start: 20110506
  3. FUROSEMIDE [Concomitant]
     Indication: FLUID RETENTION
     Dosage: 20 MG, UID/QD
     Route: 048
     Dates: start: 2011
  4. FUSIDIC ACID [Concomitant]
     Indication: SKIN LESION
     Dosage: 1 DF, UID/QD
     Route: 061
     Dates: start: 20130322, end: 20130331
  5. AMLODIPINE [Concomitant]
     Indication: HYPERTENSION
     Dosage: 5 MG, UID/QD
     Route: 048
     Dates: start: 20130310, end: 20130331
  6. AMLODIPINE [Concomitant]
     Indication: BLOOD PRESSURE INCREASED
     Dosage: 20 MG, UID/QD
     Route: 048
     Dates: start: 20130401

REACTIONS (3)
  - Basosquamous carcinoma of skin [Recovered/Resolved]
  - Superficial spreading melanoma stage unspecified [Recovered/Resolved]
  - Basal cell carcinoma [Recovered/Resolved]
